FAERS Safety Report 5173278-7 (Version None)
Quarter: 2006Q4

REPORT INFORMATION
  Report Type: 
  Country: None (occurrence: None)
  Receive Date: 20061206
  Receipt Date: 20061116
  Transmission Date: 20070319
  Serious: Yes (Other)
  Sender: FDA-Public Use
  Company Number: US-GDP-0613798

PATIENT
  Age: 66 Year
  Sex: Female

DRUGS (2)
  1. METROGEL [Suspect]
     Indication: ROSACEA
     Dosage: 1 APP ONCE TP
     Dates: start: 20061103, end: 20061103
  2. ESTRADIOL INJ [Concomitant]

REACTIONS (9)
  - BLISTER [None]
  - CONDITION AGGRAVATED [None]
  - DYSPNOEA [None]
  - HYPERSENSITIVITY [None]
  - NAUSEA [None]
  - PAIN [None]
  - PRURITUS [None]
  - RASH [None]
  - SWOLLEN TONGUE [None]
